FAERS Safety Report 9763455 (Version 1)
Quarter: 2013Q4

REPORT INFORMATION
  Report Type: Spontaneous
  Country: US (occurrence: US)
  Receive Date: 20131216
  Receipt Date: 20131216
  Transmission Date: 20140711
  Serious: No
  Sender: FDA-Public Use
  Company Number: US-BIOGENIDEC-2013BI104860

PATIENT
  Age: 32 Year
  Sex: Female

DRUGS (7)
  1. TECFIDERA [Suspect]
     Indication: MULTIPLE SCLEROSIS
  2. LEXAPRO [Concomitant]
  3. FEXOFENADINE HCL [Concomitant]
  4. D2000 ULTRA STRENGTH [Concomitant]
  5. NORDETTE-28 [Concomitant]
  6. CLARITIN [Concomitant]
  7. ADDERALL [Concomitant]

REACTIONS (1)
  - Nausea [Unknown]
